FAERS Safety Report 8095973 (Version 2)
Quarter: 2013Q1

REPORT INFORMATION
  Report Type: Report from Study
  Country: FR (occurrence: FR)
  Receive Date: 20110818
  Receipt Date: 20130211
  Transmission Date: 20140127
  Serious: Yes (Other)
  Sender: FDA-Public Use
  Company Number: FR-ROCHE-796107

PATIENT
  Age: 72 Year
  Sex: Female

DRUGS (5)
  1. BEVACIZUMAB [Suspect]
     Indication: BREAST CANCER
     Dosage: LAST DOSE ON 29 APR 2011, PERMANENTLY DISCONTINUED
     Route: 065
     Dates: start: 20110408, end: 20110429
  2. EXEMESTANE [Suspect]
     Indication: BREAST CANCER
     Dosage: LAST DOSE ON 20 MAY 2011
     Route: 065
  3. LODOZ [Concomitant]
  4. LEVOTHYROX [Concomitant]
  5. LOXEN [Concomitant]

REACTIONS (2)
  - Renal failure [Recovered/Resolved]
  - Hypertension [Recovered/Resolved with Sequelae]
